FAERS Safety Report 5931583-8 (Version None)
Quarter: 2008Q4

REPORT INFORMATION
  Report Type: 
  Country: None (occurrence: None)
  Receive Date: 20081009
  Receipt Date: 20080501
  Transmission Date: 20090506
  Serious: Yes (Disabling, Other)
  Sender: FDA-Public Use
  Company Number: PHEH2008US03434

PATIENT
  Age: 58 Year
  Sex: Male
  Weight: 81.6 kg

DRUGS (8)
  1. ZOMETA [Suspect]
     Indication: METASTASES TO BONE
     Dosage: 4 MG QUARTERLY INTRAVENOUS
     Route: 042
     Dates: start: 20070226, end: 20080110
  2. SUTENT [Concomitant]
  3. CYMBALTA [Concomitant]
  4. MIRAX (DOMPERIDONE) [Concomitant]
  5. AMLODIPINE [Concomitant]
  6. PREVACID [Concomitant]
  7. METANX (FOLIC ACID, L-METHYLFOLATE, MECOBALAMIN, PYRIDOXINE) [Concomitant]
  8. PERCOCET [Concomitant]

REACTIONS (6)
  - BONE DISORDER [None]
  - DENTAL CARIES [None]
  - MASTICATION DISORDER [None]
  - OSTEONECROSIS [None]
  - PAIN [None]
  - TOOTH DISORDER [None]
